FAERS Safety Report 19260923 (Version 2)
Quarter: 2021Q2

REPORT INFORMATION
  Report Type: Spontaneous
  Country: US (occurrence: US)
  Receive Date: 20210515
  Receipt Date: 20210617
  Transmission Date: 20210717
  Serious: No
  Sender: FDA-Public Use
  Company Number: US-ORGANON-O2105USA001136

PATIENT
  Age: 26 Year
  Sex: Female

DRUGS (1)
  1. NEXPLANON [Suspect]
     Active Substance: ETONOGESTREL
     Indication: CONTRACEPTION
     Dosage: 1 IMPLANT (68 MG), ONCE
     Route: 059
     Dates: start: 20200123, end: 20200605

REACTIONS (2)
  - Menometrorrhagia [Unknown]
  - Mood altered [Unknown]

NARRATIVE: CASE EVENT DATE: 20200605
